FAERS Safety Report 17522016 (Version 1)
Quarter: 2020Q1

REPORT INFORMATION
  Report Type: Spontaneous
  Country: US (occurrence: US)
  Receive Date: 20200310
  Receipt Date: 20200310
  Transmission Date: 20200409
  Serious: No
  Sender: FDA-Public Use
  Company Number: US-FARMAPROD-201912-2074

PATIENT
  Age: 76 Year
  Sex: Female

DRUGS (1)
  1. OXERVATE [Suspect]
     Active Substance: CENEGERMIN-BKBJ
     Indication: NEUROTROPHIC KERATOPATHY
     Route: 047
     Dates: start: 20191217

REACTIONS (3)
  - Eyelid pain [Unknown]
  - Swelling of eyelid [Unknown]
  - Eye pain [Unknown]

NARRATIVE: CASE EVENT DATE: 20191219
